FAERS Safety Report 20061931 (Version 1)
Quarter: 2021Q4

REPORT INFORMATION
  Report Type: Spontaneous
  Country: US (occurrence: US)
  Receive Date: 20211112
  Receipt Date: 20211112
  Transmission Date: 20220303
  Serious: No
  Sender: FDA-Public Use
  Company Number: US-AMGEN-USASP2020211809

PATIENT
  Age: 70 Year
  Sex: Female
  Weight: 74.376 kg

DRUGS (2)
  1. REPATHA [Suspect]
     Active Substance: EVOLOCUMAB
     Indication: Product used for unknown indication
     Route: 065
  2. REVLIMID [Suspect]
     Active Substance: LENALIDOMIDE
     Indication: Plasma cell myeloma
     Dosage: 25 MILLIGRAM, QD
     Route: 048
     Dates: start: 20190311

REACTIONS (6)
  - Vision blurred [Unknown]
  - Abdominal pain upper [Unknown]
  - Pain in extremity [Unknown]
  - Bone pain [Unknown]
  - Myalgia [Unknown]
  - Nausea [Unknown]
